FAERS Safety Report 9530657 (Version 1)
Quarter: 2013Q3

REPORT INFORMATION
  Report Type: Report from Study
  Country: IT (occurrence: IT)
  Receive Date: 20130918
  Receipt Date: 20130918
  Transmission Date: 20140515
  Serious: Yes (Other)
  Sender: FDA-Public Use
  Company Number: IT-ROCHE-1274070

PATIENT
  Sex: 0

DRUGS (8)
  1. RITUXIMAB [Suspect]
     Indication: HODGKIN^S DISEASE
     Dosage: DAY 1
     Route: 065
  2. RITUXIMAB [Suspect]
     Indication: B-CELL LYMPHOMA
  3. GEMCITABINE [Suspect]
     Indication: HODGKIN^S DISEASE
     Dosage: DAY 2
     Route: 065
  4. GEMCITABINE [Suspect]
     Indication: NON-HODGKIN^S LYMPHOMA
  5. OXALIPLATIN [Suspect]
     Indication: HODGKIN^S DISEASE
     Dosage: DAY 3
     Route: 065
  6. OXALIPLATIN [Suspect]
     Indication: NON-HODGKIN^S LYMPHOMA
  7. IFOSFAMIDE [Suspect]
     Indication: HODGKIN^S DISEASE
     Dosage: 5 G/M2 DAY 3 AS A 24 HOUR INFUSION
     Route: 065
  8. IFOSFAMIDE [Suspect]
     Indication: NON-HODGKIN^S LYMPHOMA

REACTIONS (4)
  - Platelet disorder [Unknown]
  - Anaemia [Unknown]
  - Infection [Unknown]
  - Encephalopathy [Unknown]
